FAERS Safety Report 8380370-2 (Version None)
Quarter: 2012Q2

REPORT INFORMATION
  Report Type: 
  Country: None (occurrence: None)
  Receive Date: 20120523
  Receipt Date: 20120522
  Transmission Date: 20120825
  Serious: Yes (Other)
  Sender: FDA-Public Use
  Company Number: JP-BRACCO-005849

PATIENT
  Sex: Male
  Weight: 56 kg

DRUGS (5)
  1. MEROPENEM [Concomitant]
     Dates: start: 20120411
  2. IOPAMIDOL [Suspect]
     Indication: BILE DUCT CANCER
     Dosage: ADMINISTERED AT 3 ML/SEC FOR 33 SECS
     Route: 042
     Dates: start: 20120411, end: 20120411
  3. WYSTAL [Concomitant]
     Dates: start: 20120408
  4. FLURBIPROFEN [Concomitant]
     Dates: start: 20120410
  5. IOPAMIDOL [Suspect]
     Indication: COMPUTERISED TOMOGRAM
     Dosage: ADMINISTERED AT 3 ML/SEC FOR 33 SECS
     Route: 042
     Dates: start: 20120411, end: 20120411

REACTIONS (4)
  - OXYGEN SATURATION DECREASED [None]
  - YAWNING [None]
  - DEPRESSED LEVEL OF CONSCIOUSNESS [None]
  - BLOOD PRESSURE DECREASED [None]
